FAERS Safety Report 7891889-2 (Version None)
Quarter: 2011Q4

REPORT INFORMATION
  Report Type: 
  Country: None (occurrence: None)
  Receive Date: 20111103
  Receipt Date: 20110811
  Transmission Date: 20120403
  Serious: No
  Sender: FDA-Public Use
  Company Number: US-AMGEN-USASP2011040914

PATIENT
  Age: 54 Year
  Sex: Female
  Weight: 67.574 kg

DRUGS (4)
  1. ENBREL [Suspect]
     Indication: PRODUCT USED FOR UNKNOWN INDICATION
     Dosage: 50 MG, QWK
     Route: 058
  2. FOLIC ACID [Concomitant]
     Dosage: 1 MG, UNK
  3. NAPROXEN                           /00256202/ [Concomitant]
     Dosage: 500 MG, UNK
  4. PREMPRO [Concomitant]

REACTIONS (1)
  - INJECTION SITE PAIN [None]
